FAERS Safety Report 8608800-9 (Version None)
Quarter: 2012Q3

REPORT INFORMATION
  Report Type: 
  Country: None (occurrence: None)
  Receive Date: 20120821
  Receipt Date: 20120807
  Transmission Date: 20120928
  Serious: No
  Sender: FDA-Public Use
  Company Number: US-ASTRAZENECA-2012SE55703

PATIENT
  Age: 42 Year
  Sex: Male

DRUGS (2)
  1. CRESTOR [Suspect]
     Route: 048
     Dates: start: 20120126
  2. ULORIC [Suspect]
     Indication: GOUT
     Route: 048
     Dates: start: 20110725, end: 20120125

REACTIONS (4)
  - FATIGUE [None]
  - RASH [None]
  - FLUID RETENTION [None]
  - ASTHENIA [None]
